FAERS Safety Report 14746311 (Version 4)
Quarter: 2020Q2

REPORT INFORMATION
  Report Type: Spontaneous
  Country: US (occurrence: US)
  Receive Date: 20180411
  Receipt Date: 20200625
  Transmission Date: 20200713
  Serious: No
  Sender: FDA-Public Use
  Company Number: US-STRONGBRIDGE BIOPHARMA-2018-STR-000096

PATIENT
  Age: 56 Year
  Sex: Male

DRUGS (2)
  1. KEVEYIS [Suspect]
     Active Substance: DICHLORPHENAMIDE
     Dosage: 50 MG, BID
     Route: 048
  2. KEVEYIS [Suspect]
     Active Substance: DICHLORPHENAMIDE
     Indication: FAMILIAL PERIODIC PARALYSIS
     Dosage: UNK UNK, QD
     Route: 048
     Dates: start: 20180329

REACTIONS (16)
  - Rash [Not Recovered/Not Resolved]
  - Nausea [Unknown]
  - Chills [Unknown]
  - Dizziness [Not Recovered/Not Resolved]
  - Visual impairment [Unknown]
  - Confusional state [Unknown]
  - Paraesthesia [Recovering/Resolving]
  - Mental impairment [Not Recovered/Not Resolved]
  - Confusional state [Recovering/Resolving]
  - Photopsia [Not Recovered/Not Resolved]
  - Fatigue [Unknown]
  - Nausea [Not Recovered/Not Resolved]
  - Pyrexia [Unknown]
  - Dry mouth [Not Recovered/Not Resolved]
  - Syncope [Not Recovered/Not Resolved]
  - Fatigue [Not Recovered/Not Resolved]

NARRATIVE: CASE EVENT DATE: 20180329
